FAERS Safety Report 5441762-4 (Version None)
Quarter: 2007Q3

REPORT INFORMATION
  Report Type: 
  Country: None (occurrence: None)
  Receive Date: 20070829
  Receipt Date: 20070829
  Transmission Date: 20080115
  Serious: Yes (Hospitalization)
  Sender: FDA-Public Use
  Company Number: None

PATIENT
  Sex: Male
  Weight: 84 kg

DRUGS (10)
  1. ZOMETA [Suspect]
     Indication: OSTEOPENIA
     Dosage: 4MG Q 90 DAYS X4 IV
     Route: 042
     Dates: start: 20070629
  2. DECADRON [Concomitant]
  3. DILANTIN [Concomitant]
  4. HYDROCHLOROTHIAZIDE [Concomitant]
  5. KEPPRA [Concomitant]
  6. LIPITOR [Concomitant]
  7. MINOCYCLINE HCL [Concomitant]
  8. ZANTAC 150 [Concomitant]
  9. AVASTIN [Concomitant]
  10. SIROLIMUS [Concomitant]

REACTIONS (8)
  - CONVULSION [None]
  - FAECAL INCONTINENCE [None]
  - INCORRECT DOSE ADMINISTERED [None]
  - MALIGNANT NEOPLASM PROGRESSION [None]
  - MUSCULAR WEAKNESS [None]
  - NEUROPATHY [None]
  - TONIC CLONIC MOVEMENTS [None]
  - URINARY INCONTINENCE [None]
